FAERS Safety Report 9057642 (Version 1)
Quarter: 2013Q1

REPORT INFORMATION
  Report Type: Spontaneous
  Country: FR (occurrence: FR)
  Receive Date: 20130204
  Receipt Date: 20130204
  Transmission Date: 20140127
  Serious: Yes (Hospitalization)
  Sender: FDA-Public Use
  Company Number: FR-PFIZER INC-2013039610

PATIENT
  Age: 58 Year
  Sex: Male

DRUGS (8)
  1. AMLOR [Suspect]
     Dosage: UNK
     Route: 048
     Dates: end: 20121120
  2. LASILIX [Suspect]
     Dosage: UNK
     Route: 048
     Dates: end: 20121120
  3. PRADAXA [Suspect]
     Indication: ATRIAL FIBRILLATION
     Dosage: UNK
     Route: 048
     Dates: start: 20120925, end: 20121120
  4. EUPRESSYL [Suspect]
     Dosage: 60
     Route: 048
     Dates: end: 20121120
  5. ALLOPURINOL [Concomitant]
     Dosage: 300 MG
     Route: 048
  6. CORDARONE [Concomitant]
     Indication: ATRIAL FIBRILLATION
     Dosage: UNK
     Route: 048
     Dates: start: 201210
  7. CARDENSIEL [Concomitant]
     Indication: ATRIAL FIBRILLATION
     Dosage: UNK
     Route: 048
     Dates: start: 201210
  8. DIFFU K [Concomitant]
     Route: 048

REACTIONS (1)
  - Renal failure acute [Recovering/Resolving]
